FAERS Safety Report 8831209 (Version 1)
Quarter: 2012Q4

REPORT INFORMATION
  Report Type: Spontaneous
  Country: US (occurrence: None)
  Receive Date: 20121005
  Receipt Date: 20121005
  Transmission Date: 20130627
  Serious: Yes (Hospitalization, Disabling)
  Sender: FDA-Public Use
  Company Number: None

PATIENT
  Age: 52 Year
  Sex: Female
  Weight: 67.13 kg

DRUGS (1)
  1. METOCLOPRAMIDE [Suspect]
     Indication: ACID REFLUX
     Dates: start: 20100602, end: 20100617

REACTIONS (1)
  - Tardive dyskinesia [None]
